FAERS Safety Report 8078127 (Version 2)
Quarter: 2012Q4

REPORT INFORMATION
  Report Type: 
  Country: US (occurrence: US)
  Receive Date: 20110806
  Receipt Date: 20121025
  Transmission Date: 20130627
  Serious: Yes (Hospitalization)
  Sender: FDA-Public Use
  Company Number: US-ABBOTT-11P-163-0835389-00

PATIENT
  Age: 36 Year
  Sex: Male

DRUGS (2)
  1. NIASPAN (COATED) [Suspect]
     Indication: BLOOD CHOLESTEROL INCREASED
  2. COPAXONE [Suspect]
     Indication: MULTIPLE SCLEROSIS
     Route: 058
     Dates: start: 20110515

REACTIONS (6)
  - Vomiting [Unknown]
  - Fall [Unknown]
  - Pyrexia [Unknown]
  - Feeling hot [Unknown]
  - Hyperhidrosis [Unknown]
  - Feeling cold [Unknown]
